FAERS Safety Report 4744073-5 (Version None)
Quarter: 2005Q3

REPORT INFORMATION
  Report Type: 
  Country: None (occurrence: None)
  Receive Date: 20050811
  Receipt Date: 20050811
  Transmission Date: 20060218
  Serious: Yes (Hospitalization)
  Sender: FDA-Public Use
  Company Number: None

PATIENT
  Age: 74 Year
  Sex: 0

DRUGS (1)
  1. VELCADE [Suspect]
     Indication: MANTLE CELL LYMPHOMA
     Dosage: 2.55 MG IV
     Route: 042
     Dates: start: 20050517

REACTIONS (3)
  - FEBRILE NEUTROPENIA [None]
  - HYPOTENSION [None]
  - SEPSIS [None]
